FAERS Safety Report 13911854 (Version 1)
Quarter: 2017Q3

REPORT INFORMATION
  Report Type: Spontaneous
  Country: US (occurrence: US)
  Receive Date: 20170828
  Receipt Date: 20170828
  Transmission Date: 20171127
  Serious: No
  Sender: FDA-Public Use
  Company Number: US-ROCHE-GNE092960

PATIENT
  Age: 51 Year
  Sex: Female

DRUGS (9)
  1. PAXIL [Concomitant]
     Active Substance: PAROXETINE HYDROCHLORIDE
     Route: 065
  2. DEXASONE [Concomitant]
     Active Substance: DEXAMETHASONE
     Route: 065
  3. SYNTHROID [Concomitant]
     Active Substance: LEVOTHYROXINE SODIUM
  4. SELEGILINE [Concomitant]
     Active Substance: SELEGILINE
  5. ARMOUR THYROID [Concomitant]
     Active Substance: THYROID, PORCINE
     Dosage: DOSE=.5 UNIT
     Route: 065
  6. ESTRADIOL. [Concomitant]
     Active Substance: ESTRADIOL
     Dosage: UNK, 1/WEEK
     Route: 030
  7. NUTROPIN [Suspect]
     Active Substance: SOMATROPIN
     Dosage: DOSE=5 UNIT
     Route: 058
     Dates: end: 19990919
  8. NUTROPIN [Suspect]
     Active Substance: SOMATROPIN
     Indication: DWARFISM
     Route: 058
     Dates: start: 199901
  9. SLO-BID [Concomitant]
     Active Substance: THEOPHYLLINE ANHYDROUS
     Route: 065

REACTIONS (11)
  - Oedema [Unknown]
  - Weight increased [Unknown]
  - Injection site pain [Unknown]
  - Hypertension [Recovering/Resolving]
  - Arthralgia [Unknown]
  - Nausea [Unknown]
  - Abdominal pain [Unknown]
  - Myalgia [Unknown]
  - Pyrexia [Unknown]
  - Depression [Unknown]
  - Fatigue [Unknown]

NARRATIVE: CASE EVENT DATE: 199905
